FAERS Safety Report 18012931 (Version 1)
Quarter: 2020Q3

REPORT INFORMATION
  Report Type: Spontaneous
  Country: US (occurrence: US)
  Receive Date: 20200710
  Receipt Date: 20200710
  Transmission Date: 20201103
  Serious: Yes (Hospitalization)
  Sender: FDA-Public Use
  Company Number: None

PATIENT
  Age: 20 Year
  Sex: Male

DRUGS (1)
  1. LISINOPRIL. [Suspect]
     Active Substance: LISINOPRIL
     Indication: IGA NEPHROPATHY
     Route: 048
     Dates: start: 20190610, end: 20190630

REACTIONS (1)
  - Blood potassium increased [None]

NARRATIVE: CASE EVENT DATE: 20190610
